FAERS Safety Report 4323022-8 (Version None)
Quarter: 2004Q1

REPORT INFORMATION
  Report Type: 
  Country: None (occurrence: None)
  Receive Date: 20040322
  Receipt Date: 20040305
  Transmission Date: 20041129
  Serious: Yes (Hospitalization)
  Sender: FDA-Public Use
  Company Number: 192481

PATIENT
  Age: 50 Year
  Sex: Male
  Weight: 129.2752 kg

DRUGS (10)
  1. AVONEX [Suspect]
     Indication: MULTIPLE SCLEROSIS
     Dosage: 30 MCG QW IM
     Route: 030
     Dates: start: 19970101, end: 20020201
  2. AVONEX [Suspect]
     Indication: MULTIPLE SCLEROSIS
     Dosage: 30 MCG QW IM
     Route: 030
     Dates: start: 20030201
  3. GLUCOPHAGE [Concomitant]
  4. AMARYL [Concomitant]
  5. NEXIUM [Concomitant]
  6. LIPITOR [Concomitant]
  7. LOTENSIN [Concomitant]
  8. ZANTAC [Concomitant]
  9. ACTOS [Concomitant]
  10. CYCLOBENZOPRINE [Concomitant]

REACTIONS (3)
  - ASTHENIA [None]
  - INTERVERTEBRAL DISC PROTRUSION [None]
  - VISUAL ACUITY REDUCED [None]
